FAERS Safety Report 7465700-8 (Version None)
Quarter: 2011Q2

REPORT INFORMATION
  Report Type: 
  Country: None (occurrence: None)
  Receive Date: 20110509
  Receipt Date: 20110502
  Transmission Date: 20111010
  Serious: Yes (Hospitalization)
  Sender: FDA-Public Use
  Company Number: B0714700A

PATIENT
  Sex: Male

DRUGS (1)
  1. ARIXTRA [Suspect]
     Dosage: 7.5MG PER DAY
     Route: 058
     Dates: start: 20110317

REACTIONS (4)
  - MUSCLE HAEMORRHAGE [None]
  - ANAEMIA [None]
  - OFF LABEL USE [None]
  - CONDITION AGGRAVATED [None]
